FAERS Safety Report 20160423 (Version 1)
Quarter: 2021Q4

REPORT INFORMATION
  Report Type: Spontaneous
  Country: US (occurrence: None)
  Receive Date: 20211208
  Receipt Date: 20211208
  Transmission Date: 20220303
  Serious: No
  Sender: FDA-Public Use
  Company Number: 2021A783337

PATIENT

DRUGS (1)
  1. FASENRA [Suspect]
     Active Substance: BENRALIZUMAB
     Dosage: SINCE OCTOBER, UNKNOWN DOSE EVERY TWO MONTHS
     Route: 058

REACTIONS (1)
  - Seasonal allergy [Unknown]
